FAERS Safety Report 4382416-5 (Version None)
Quarter: 2004Q2

REPORT INFORMATION
  Report Type: 
  Country: None (occurrence: None)
  Receive Date: 20040617
  Receipt Date: 20040607
  Transmission Date: 20050107
  Serious: No
  Sender: FDA-Public Use
  Company Number: 04P-062-0261425-00

PATIENT
  Age: 26 Year
  Sex: Male

DRUGS (4)
  1. DEPAKENE [Suspect]
     Indication: EPILEPSY
     Dosage: 2000 MG, 3 IN 1 D, PER ORAL
     Route: 048
  2. LAMOTRIGINE [Concomitant]
  3. LEVETIRACETAM [Concomitant]
  4. PANTOPRAZOLE SODIUM [Concomitant]

REACTIONS (15)
  - ACNE [None]
  - AGGRESSION [None]
  - ALOPECIA [None]
  - ASTHENIA [None]
  - ATAXIA [None]
  - CEREBRAL ATROPHY [None]
  - CONVULSION [None]
  - CONVULSIVE THRESHOLD LOWERED [None]
  - DISTURBANCE IN ATTENTION [None]
  - HEPATIC ENZYME INCREASED [None]
  - HYPOACUSIS [None]
  - INTRACRANIAL PRESSURE INCREASED [None]
  - MEMORY IMPAIRMENT [None]
  - PRESCRIBED OVERDOSE [None]
  - WEIGHT INCREASED [None]
